FAERS Safety Report 4566317-5 (Version None)
Quarter: 2005Q1

REPORT INFORMATION
  Report Type: 
  Country: None (occurrence: None)
  Receive Date: 20050126
  Receipt Date: 20050126
  Transmission Date: 20050727
  Serious: Yes (Hospitalization)
  Sender: FDA-Public Use
  Company Number: None

PATIENT
  Age: 67 Year
  Sex: Female
  Weight: 72.1219 kg

DRUGS (1)
  1. MIRTAZAPINE [Suspect]
     Dosage: 15 MG   ONCE   ORAL
     Route: 048
     Dates: start: 20041218, end: 20041218

REACTIONS (5)
  - CHEST PAIN [None]
  - DISCOMFORT [None]
  - PNEUMOTHORAX [None]
  - RIB FRACTURE [None]
  - ROAD TRAFFIC ACCIDENT [None]
